FAERS Safety Report 4833361-X (Version None)
Quarter: 2005Q4

REPORT INFORMATION
  Report Type: 
  Country: None (occurrence: None)
  Receive Date: 20051117
  Receipt Date: 20051108
  Transmission Date: 20060501
  Serious: Yes (Hospitalization)
  Sender: FDA-Public Use
  Company Number: 2005154494

PATIENT
  Age: 66 Year
  Sex: Male

DRUGS (1)
  1. CARDURA [Suspect]
     Indication: BENIGN PROSTATIC HYPERPLASIA
     Dosage: 4 MG (4 MG, SINGLE INTERVAL:  EVERYDAY), ORAL
     Route: 048
     Dates: start: 20031201, end: 20051101

REACTIONS (1)
  - PROSTATECTOMY [None]
